FAERS Safety Report 5329862-0 (Version None)
Quarter: 2007Q2

REPORT INFORMATION
  Report Type: 
  Country: None (occurrence: None)
  Receive Date: 20070521
  Receipt Date: 20070514
  Transmission Date: 20071010
  Serious: Yes (Death)
  Sender: FDA-Public Use
  Company Number: PHHO2006KR12455

PATIENT
  Age: 72 Year
  Sex: Male
  Weight: 63 kg

DRUGS (4)
  1. ZOMETA [Suspect]
     Indication: METASTASES TO BONE
     Dosage: 4 MG
     Dates: start: 20060217
  2. VINCRISTINE [Concomitant]
  3. DOXORUBICIN HCL [Concomitant]
  4. DEXAMETHASONE 0.5MG TAB [Concomitant]

REACTIONS (3)
  - FUNGAL INFECTION [None]
  - MALIGNANT NEOPLASM PROGRESSION [None]
  - SEPSIS [None]
